FAERS Safety Report 9931510 (Version 2)
Quarter: 2014Q1

REPORT INFORMATION
  Report Type: Report from Study
  Country: US (occurrence: US)
  Receive Date: 20140228
  Receipt Date: 20140228
  Transmission Date: 20141002
  Serious: Yes (Hospitalization)
  Sender: FDA-Public Use
  Company Number: US-ROCHE-1353511

PATIENT
  Age: 89 Year
  Sex: Male
  Weight: 77.63 kg

DRUGS (21)
  1. ZELBORAF [Suspect]
     Indication: SKIN CANCER
     Route: 048
     Dates: start: 20140131, end: 20140214
  2. FENTANYL [Suspect]
     Indication: PAIN
     Route: 023
     Dates: end: 20140214
  3. AMLODIPINE BESYLATE [Concomitant]
     Route: 048
  4. ASPIR 81 [Concomitant]
     Dosage: IN MORNING
     Route: 048
  5. CHLORTHALIDONE [Concomitant]
     Route: 048
  6. FINASTERIDE [Concomitant]
     Route: 048
  7. FISH OIL CONCENTRATE [Concomitant]
     Dosage: 300-1000 MG IN MORNING
     Route: 048
  8. LISINOPRIL [Concomitant]
     Dosage: AT NIGHT
     Route: 048
  9. MECLIZINE HCL [Concomitant]
     Route: 048
  10. METOPROLOL TARTRATE [Concomitant]
     Dosage: TAKE 0.5
     Route: 048
  11. OMEPRAZOLE [Concomitant]
     Dosage: AT NIGHT
     Route: 048
  12. PLAVIX [Concomitant]
     Dosage: AT NIGHT
     Route: 048
  13. POTASSIUM CHLORIDE [Concomitant]
     Dosage: 10 MEQ CAPSULE, TAKE 2
     Route: 048
  14. PRAVASTATIN SODIUM [Concomitant]
     Dosage: QHS
     Route: 048
  15. PROCHLORPERAZINE MALEATE [Concomitant]
     Indication: NAUSEA
     Dosage: AS REQUIRED
     Route: 048
  16. SUPER B COMPLEX [Concomitant]
     Dosage: IN MORNING
     Route: 048
  17. TAMSULOSIN HCL [Concomitant]
     Route: 048
  18. VITAMIN C [Concomitant]
     Dosage: IN MORNING
     Route: 048
  19. VITAMIN D3 [Concomitant]
     Dosage: 1000 UNIT, IN MORNING
     Route: 065
  20. VITAMIN E [Concomitant]
     Dosage: 400 UNIT TABLET, IN MORNING
     Route: 048
  21. ZINC ACETATE [Concomitant]
     Dosage: IN MORNING
     Route: 048

REACTIONS (1)
  - Pneumonia [Recovered/Resolved]
